FAERS Safety Report 24189458 (Version 1)
Quarter: 2024Q3

REPORT INFORMATION
  Report Type: Spontaneous
  Country: CA (occurrence: CA)
  Receive Date: 20240808
  Receipt Date: 20240808
  Transmission Date: 20241017
  Serious: Yes (Other)
  Sender: TEVA
  Company Number: CA-TEVA-VS-3227831

PATIENT
  Sex: Female

DRUGS (2)
  1. CYCLOSPORINE [Suspect]
     Active Substance: CYCLOSPORINE
     Indication: Product used for unknown indication
     Route: 065
  2. MONTELUKAST [Suspect]
     Active Substance: MONTELUKAST SODIUM
     Indication: Idiopathic urticaria
     Route: 065

REACTIONS (3)
  - Angioedema [Unknown]
  - Urticaria [Unknown]
  - Drug ineffective [Unknown]
